FAERS Safety Report 12447279 (Version 1)
Quarter: 2016Q2

REPORT INFORMATION
  Report Type: Spontaneous
  Country: ES (occurrence: ES)
  Receive Date: 20160608
  Receipt Date: 20160608
  Transmission Date: 20160815
  Serious: Yes (Other)
  Sender: FDA-Public Use
  Company Number: ES-SA-2016SA107176

PATIENT
  Age: 17 Year
  Sex: Male

DRUGS (6)
  1. PYRAZINAMIDE. [Concomitant]
     Active Substance: PYRAZINAMIDE
     Indication: PULMONARY TUBERCULOSIS
  2. RIFAMPICIN [Suspect]
     Active Substance: RIFAMPIN
     Indication: PULMONARY TUBERCULOSIS
     Route: 065
  3. ETHAMBUTOL [Concomitant]
     Active Substance: ETHAMBUTOL HYDROCHLORIDE
     Indication: PULMONARY TUBERCULOSIS
  4. ISONIAZID. [Concomitant]
     Active Substance: ISONIAZID
     Indication: PULMONARY TUBERCULOSIS
  5. VALACICLOVIR [Concomitant]
     Active Substance: VALACYCLOVIR HYDROCHLORIDE
  6. CLOXACILLIN [Concomitant]
     Active Substance: CLOXACILLIN

REACTIONS (4)
  - Rash vesicular [Recovered/Resolved with Sequelae]
  - Skin hyperpigmentation [Unknown]
  - Pemphigoid [Recovered/Resolved with Sequelae]
  - Pruritus [Recovered/Resolved with Sequelae]
